FAERS Safety Report 15292626 (Version 1)
Quarter: 2018Q3

REPORT INFORMATION
  Report Type: Spontaneous
  Country: GB (occurrence: GB)
  Receive Date: 20180819
  Receipt Date: 20180819
  Transmission Date: 20181010
  Serious: Yes (Other)
  Sender: FDA-Public Use
  Company Number: GB-TEVA-2018-GB-943663

PATIENT
  Age: 70 Year
  Sex: Female
  Weight: 83 kg

DRUGS (13)
  1. LANSOPRAZOLE. [Concomitant]
     Active Substance: LANSOPRAZOLE
     Dosage: 1 DOSAGE FORMS DAILY;
     Dates: start: 20170727
  2. GAVISCON ADVANCE [Concomitant]
     Active Substance: POTASSIUM BICARBONATE\SODIUM ALGINATE
     Dosage: 5?10 MLS FOUR TIMES DAILY
     Dates: start: 20170727
  3. OXYBUTYNIN. [Concomitant]
     Active Substance: OXYBUTYNIN CHLORIDE
     Dosage: 1 OR 2 AT NIGHT
     Dates: start: 20170727
  4. TRIFLUOPERAZINE [Concomitant]
     Active Substance: TRIFLUOPERAZINE\TRIFLUOPERAZINE HYDROCHLORIDE
     Dosage: 5 ML DAILY;
     Route: 065
     Dates: start: 20180626
  5. CLARITHROMYCIN. [Concomitant]
     Active Substance: CLARITHROMYCIN
     Dosage: 2 DOSAGE FORMS DAILY; FOR 7 DAYS
     Dates: start: 20180711, end: 20180718
  6. OMEPRAZOLE. [Concomitant]
     Active Substance: OMEPRAZOLE
     Dosage: 1 DOSAGE FORMS DAILY;
     Dates: start: 20170727
  7. NYSTATIN. [Concomitant]
     Active Substance: NYSTATIN
     Dosage: APPLY 2?3 TIMES/DAY
     Dates: start: 20180711, end: 20180712
  8. MOVELAT [Concomitant]
     Dosage: AS DIRECTED
     Dates: start: 20170727
  9. LIOTHYRONINE [Concomitant]
     Active Substance: LIOTHYRONINE
     Dosage: .5 DOSAGE FORMS DAILY; 1/2 TABLET EVERYDAY
     Dates: start: 20170727
  10. FLEXITOL HEEL BALM [Concomitant]
     Dosage: 2 DOSAGE FORMS DAILY; APPLY
     Dates: start: 20180624
  11. PHENOXYMETHYLPENICILLIN [Suspect]
     Active Substance: PENICILLIN V
     Route: 065
     Dates: start: 20180711
  12. ADCAL [Concomitant]
     Active Substance: CALCIUM CARBONATE
     Dosage: 2 DOSAGE FORMS DAILY;
     Dates: start: 20180131
  13. HYDROCORTISONE. [Concomitant]
     Active Substance: HYDROCORTISONE
     Dosage: 2 DOSAGE FORMS DAILY; APPLY
     Dates: start: 20170727

REACTIONS (3)
  - Malaise [Unknown]
  - Rash [Recovered/Resolved]
  - Hypersensitivity [Recovered/Resolved]

NARRATIVE: CASE EVENT DATE: 20180718
